FAERS Safety Report 5815780-8 (Version None)
Quarter: 2008Q3

REPORT INFORMATION
  Report Type: 
  Country: None (occurrence: None)
  Receive Date: 20080721
  Receipt Date: 20080616
  Transmission Date: 20090109
  Serious: No
  Sender: FDA-Public Use
  Company Number: US-BAYER-200825788NA

PATIENT
  Age: 46 Year
  Sex: Female
  Weight: 82 kg

DRUGS (3)
  1. MAGNEVIST [Suspect]
     Indication: NUCLEAR MAGNETIC RESONANCE IMAGING
     Dosage: TOTAL DAILY DOSE: 17 ML  UNIT DOSE: 20 ML
     Route: 042
     Dates: start: 20080527, end: 20080527
  2. PREDNISONE TAB [Concomitant]
     Indication: PREMEDICATION
     Dosage: UNIT DOSE: 50 MG
     Dates: start: 20080526
  3. BENADRYL [Concomitant]
     Indication: PREMEDICATION
     Dates: start: 20080527

REACTIONS (1)
  - URTICARIA [None]
